FAERS Safety Report 4322392-4 (Version None)
Quarter: 2004Q1

REPORT INFORMATION
  Report Type: 
  Country: None (occurrence: None)
  Receive Date: 20040323
  Receipt Date: 20040323
  Transmission Date: 20041129
  Serious: No
  Sender: FDA-Public Use
  Company Number: None

PATIENT
  Sex: Female

DRUGS (1)
  1. OXYMETAZOLINE HCL [Suspect]
     Indication: BRONCHOSCOPY
     Dosage: DROPS ONCE NASAL
     Route: 045
     Dates: start: 20040215, end: 20040215

REACTIONS (3)
  - CULTURE POSITIVE [None]
  - INCREASED BRONCHIAL SECRETION [None]
  - STAPHYLOCOCCAL INFECTION [None]
